FAERS Safety Report 25647932 (Version 2)
Quarter: 2025Q3

REPORT INFORMATION
  Report Type: Spontaneous
  Country: EU (occurrence: EU)
  Receive Date: 20250806
  Receipt Date: 20250828
  Transmission Date: 20251021
  Serious: Yes (Other)
  Sender: EXELIXIS
  Company Number: EU-IPSEN Group, Research and Development-2025-18602

PATIENT
  Age: 78 Year
  Sex: Male

DRUGS (2)
  1. CABOMETYX [Suspect]
     Active Substance: CABOZANTINIB S-MALATE
     Indication: Renal cell carcinoma
     Dates: start: 2001, end: 202504
  2. NIVOLUMAB [Suspect]
     Active Substance: NIVOLUMAB
     Indication: Renal cell carcinoma
     Dates: start: 2001, end: 202504

REACTIONS (19)
  - Antibiotic associated colitis [Unknown]
  - Duodenal ulcer [Unknown]
  - Chronic kidney disease [Unknown]
  - Nephrotic syndrome [Unknown]
  - Osteonecrosis of jaw [Unknown]
  - Intestinal haemorrhage [Unknown]
  - Disease progression [Unknown]
  - Hypothyroidism [Unknown]
  - Pancreatitis [Unknown]
  - Disease progression [Unknown]
  - Humerus fracture [Unknown]
  - Coronary artery disease [Unknown]
  - Hernia repair [Unknown]
  - Fall [Unknown]
  - Rib fracture [Unknown]
  - Metabolic acidosis [Unknown]
  - Humerus fracture [Unknown]
  - Diarrhoea [Unknown]
  - Pain [Unknown]

NARRATIVE: CASE EVENT DATE: 20190501
